FAERS Safety Report 9110025 (Version 2)
Quarter: 2013Q2

REPORT INFORMATION
  Report Type: Spontaneous
  Country: DE (occurrence: DE)
  Receive Date: 20130222
  Receipt Date: 20130501
  Transmission Date: 20140414
  Serious: Yes (Other)
  Sender: FDA-Public Use
  Company Number: DE-ROCHE-1193651

PATIENT
  Age: 1 Year
  Sex: Female
  Weight: 10.3 kg

DRUGS (3)
  1. ROACTEMRA [Suspect]
     Indication: JUVENILE IDIOPATHIC ARTHRITIS
     Route: 042
     Dates: start: 20130208, end: 20130208
  2. PREDNISONE [Concomitant]
     Route: 065
     Dates: start: 20121230
  3. PARACETAMOL [Concomitant]
     Route: 048

REACTIONS (1)
  - Liver disorder [Recovered/Resolved]
